FAERS Safety Report 12997758 (Version 3)
Quarter: 2016Q4

REPORT INFORMATION
  Report Type: Spontaneous
  Country: JP (occurrence: JP)
  Receive Date: 20161205
  Receipt Date: 20161219
  Transmission Date: 20170207
  Serious: Yes (Other)
  Sender: FDA-Public Use
  Company Number: JP-PFIZER INC-2016559098

PATIENT
  Age: 62 Year
  Sex: Female

DRUGS (5)
  1. FLUOROURACIL. [Suspect]
     Active Substance: FLUOROURACIL
     Dosage: UNK, (CONTINUOUS INFUSION 600 MG/M2 OVER 22 HRS, 10 COURSES)
     Dates: start: 201201
  2. FLUOROURACIL. [Suspect]
     Active Substance: FLUOROURACIL
     Indication: RECTAL CANCER METASTATIC
     Dosage: 400 MG/M2, UNK, (DAYS 1-2, 10 COURSES)
     Route: 040
     Dates: start: 201201
  3. PANITUMUMAB [Suspect]
     Active Substance: PANITUMUMAB
     Indication: RECTAL CANCER METASTATIC
     Dosage: 6 MG/KG, UNK, (DAY 1, 10 COURSES)
     Dates: start: 201201
  4. OXALIPLATIN. [Suspect]
     Active Substance: OXALIPLATIN
     Indication: RECTAL CANCER METASTATIC
     Dosage: 85 MG/M2, UNK, (DAY 1-2, 10 COURSES)
     Dates: start: 201201
  5. CALCIUM FOLINATE [Suspect]
     Active Substance: LEUCOVORIN CALCIUM
     Indication: RECTAL CANCER METASTATIC
     Dosage: UNK, CYCLIC, (10 COURSES)

REACTIONS (3)
  - Neuropathy peripheral [Unknown]
  - Paronychia [Unknown]
  - Rash [Unknown]
